FAERS Safety Report 4533917-8 (Version None)
Quarter: 2004Q4

REPORT INFORMATION
  Report Type: 
  Country: None (occurrence: None)
  Receive Date: 20041210
  Receipt Date: 20040716
  Transmission Date: 20050328
  Serious: Yes (Life-Threatening)
  Sender: FDA-Public Use
  Company Number: A03200402365

PATIENT
  Age: 64 Year
  Sex: Female
  Weight: 97.3419 kg

DRUGS (3)
  1. ELOXATIN [Suspect]
     Indication: COLON CANCER
     Dosage: 200 MG OTHER - INTRAVENOUS NOS
     Route: 042
     Dates: start: 20040409, end: 20040409
  2. FLUOROURACIL [Concomitant]
  3. LEUCOVORIN [Concomitant]

REACTIONS (11)
  - ANAPHYLACTIC REACTION [None]
  - BLOOD PRESSURE DECREASED [None]
  - COLD SWEAT [None]
  - DIZZINESS [None]
  - DYSPNOEA [None]
  - FEELING HOT [None]
  - FLUSHING [None]
  - HEART RATE INCREASED [None]
  - NERVOUSNESS [None]
  - OXYGEN SATURATION DECREASED [None]
  - URTICARIA [None]
